FAERS Safety Report 4263691-4 (Version None)
Quarter: 2004Q1

REPORT INFORMATION
  Report Type: 
  Country: None (occurrence: None)
  Receive Date: 20040102
  Receipt Date: 20031222
  Transmission Date: 20041129
  Serious: Yes (Hospitalization)
  Sender: FDA-Public Use
  Company Number: USA031255223

PATIENT
  Age: 70 Year
  Sex: Male

DRUGS (3)
  1. HUMULIN 70/30 [Suspect]
     Indication: DIABETES MELLITUS NON-INSULIN-DEPENDENT
     Dosage: 52 U/DAY
     Dates: start: 19980101, end: 20031101
  2. IBUPROFEN [Concomitant]
  3. SULFAMETHOXAZOLE + TRIMETHOPRIM [Concomitant]

REACTIONS (5)
  - BLOOD GLUCOSE ABNORMAL [None]
  - CONVULSION [None]
  - HYPOGLYCAEMIA [None]
  - MEDICATION ERROR [None]
  - URINARY TRACT INFECTION [None]
